FAERS Safety Report 9509194 (Version 1)
Quarter: 2013Q3

REPORT INFORMATION
  Report Type: Spontaneous
  Country: US (occurrence: US)
  Receive Date: 20130909
  Receipt Date: 20130909
  Transmission Date: 20140515
  Serious: No
  Sender: FDA-Public Use
  Company Number: US-BRISTOL-MYERS SQUIBB COMPANY-19021922

PATIENT
  Age: 15 Year
  Sex: Female

DRUGS (2)
  1. ABILIFY TABS 5 MG [Suspect]
  2. LEVOTHYROXINE [Concomitant]

REACTIONS (2)
  - Drug dose omission [Unknown]
  - Disturbance in attention [Unknown]
